FAERS Safety Report 8267352-6 (Version None)
Quarter: 2012Q2

REPORT INFORMATION
  Report Type: 
  Country: None (occurrence: None)
  Receive Date: 20120409
  Receipt Date: 20120330
  Transmission Date: 20120825
  Serious: Yes (Other)
  Sender: FDA-Public Use
  Company Number: PHEH2012US005901

PATIENT
  Sex: Female
  Weight: 52.73 kg

DRUGS (10)
  1. LEVSIN [Concomitant]
     Dosage: 0.125 MG, EVERY 6 HOURS, AS NEEDED
     Route: 048
     Dates: start: 20110815
  2. ZOFRAN [Concomitant]
     Dosage: 4 MG, 4 TIMES A DAY PRN
     Route: 048
     Dates: start: 20110815
  3. TEGRETOL-XR [Suspect]
     Dosage: 100 MG, BID
     Route: 048
     Dates: start: 20120223, end: 20120224
  4. NORTRIPTYLINE HYDROCHLORIDE [Concomitant]
     Dosage: 10 MG, QD3SDO
     Route: 048
     Dates: start: 20120312
  5. PROBIOTICS [Concomitant]
  6. RELPAX [Concomitant]
     Dosage: 40 MG, MAXIMUN 2 PER DAY
     Dates: start: 20111220
  7. VITAMIN B-12 [Concomitant]
     Dosage: 1 DF, QD
     Route: 048
     Dates: start: 20120223
  8. MAXALT-MLT [Concomitant]
     Dosage: 1 DF, PRN. MAY REPEAT 1 TIME IN 24HRS
     Route: 048
     Dates: start: 20120223
  9. TEGRETOL-XR [Suspect]
     Dosage: 100 MG, QD
     Route: 048
  10. VITAMIN D [Concomitant]
     Dosage: 1 DF, QD
     Route: 048
     Dates: start: 20120223

REACTIONS (8)
  - ABDOMINAL PAIN [None]
  - PHARYNGEAL OEDEMA [None]
  - ANXIETY [None]
  - BACK PAIN [None]
  - DYSPNOEA [None]
  - CHEST PAIN [None]
  - THROAT TIGHTNESS [None]
  - PAIN IN EXTREMITY [None]
